FAERS Safety Report 22287332 (Version 1)
Quarter: 2023Q2

REPORT INFORMATION
  Report Type: Spontaneous
  Country: IN (occurrence: IN)
  Receive Date: 20230505
  Receipt Date: 20230505
  Transmission Date: 20230721
  Serious: Yes (Hospitalization, Other)
  Sender: FDA-Public Use
  Company Number: IN-SUN PHARMACEUTICAL INDUSTRIES LTD-2023R1-387481

PATIENT
  Age: 4 Year
  Sex: Male

DRUGS (2)
  1. LEVETIRACETAM [Suspect]
     Active Substance: LEVETIRACETAM
     Indication: Epilepsy
     Dosage: UNK
     Route: 065
  2. ACYCLOVIR [Suspect]
     Active Substance: ACYCLOVIR
     Indication: Encephalopathy
     Dosage: UNK
     Route: 065

REACTIONS (1)
  - Pneumonia [Recovering/Resolving]
